FAERS Safety Report 9887570 (Version 1)
Quarter: 2014Q1

REPORT INFORMATION
  Report Type: Report from Study
  Country: MX (occurrence: MX)
  Receive Date: 20140211
  Receipt Date: 20140211
  Transmission Date: 20141002
  Serious: Yes (Disabling, Other)
  Sender: FDA-Public Use
  Company Number: MX-ROCHE-1347227

PATIENT
  Age: 36 Year
  Sex: Female

DRUGS (2)
  1. RANIBIZUMAB [Suspect]
     Indication: GLAUCOMA
     Route: 050
     Dates: start: 201307
  2. ITRACONAZOLE [Concomitant]
     Indication: PNEUMONIA FUNGAL
     Route: 065
     Dates: start: 201301

REACTIONS (5)
  - Blindness [Not Recovered/Not Resolved]
  - Vascular rupture [Not Recovered/Not Resolved]
  - Eye haemorrhage [Not Recovered/Not Resolved]
  - Diabetes mellitus [Not Recovered/Not Resolved]
  - Off label use [Unknown]
